FAERS Safety Report 18625865 (Version 1)
Quarter: 2020Q4

REPORT INFORMATION
  Report Type: Spontaneous
  Country: AU (occurrence: AU)
  Receive Date: 20201217
  Receipt Date: 20201217
  Transmission Date: 20210114
  Serious: No
  Sender: FDA-Public Use
  Company Number: AU-LUPIN PHARMACEUTICALS INC.-2020-10243

PATIENT
  Sex: Male

DRUGS (2)
  1. SIMVASTATIN. [Suspect]
     Active Substance: SIMVASTATIN
     Indication: STEATOCYSTOMA MULTIPLEX
     Dosage: 20 MILLIGRAM, QD
     Route: 065
  2. ISOTRETINOIN. [Suspect]
     Active Substance: ISOTRETINOIN
     Indication: STEATOCYSTOMA MULTIPLEX
     Dosage: UNK
     Route: 065

REACTIONS (1)
  - Drug ineffective [Unknown]
